FAERS Safety Report 20811472 (Version 4)
Quarter: 2022Q2

REPORT INFORMATION
  Report Type: Spontaneous
  Country: KR (occurrence: KR)
  Receive Date: 20220510
  Receipt Date: 20220623
  Transmission Date: 20220721
  Serious: Yes (Hospitalization)
  Sender: FDA-Public Use
  Company Number: KR-SA-SAC20220504001599

PATIENT
  Age: 75 Year
  Sex: Female

DRUGS (3)
  1. TAXOTERE [Suspect]
     Active Substance: DOCETAXEL
     Indication: Breast cancer
     Dosage: 100 MG
     Dates: start: 20220215, end: 20220215
  2. TAXOTERE [Suspect]
     Active Substance: DOCETAXEL
     Dosage: 100 MG
     Dates: start: 20220309, end: 20220309
  3. TAXOTERE [Suspect]
     Active Substance: DOCETAXEL
     Dosage: UNK, 1X
     Route: 042
     Dates: start: 20220318, end: 20220318

REACTIONS (3)
  - Discharge [Not Recovered/Not Resolved]
  - Rash [Recovered/Resolved]
  - Pyrexia [Not Recovered/Not Resolved]

NARRATIVE: CASE EVENT DATE: 20220319
